FAERS Safety Report 17745687 (Version 1)
Quarter: 2020Q2

REPORT INFORMATION
  Report Type: Spontaneous
  Country: US (occurrence: US)
  Receive Date: 20200505
  Receipt Date: 20200505
  Transmission Date: 20200714
  Serious: Yes (Other)
  Sender: FDA-Public Use
  Company Number: US-JNJFOC-20200500477

PATIENT
  Age: 59 Year
  Sex: Female
  Weight: 68.1 kg

DRUGS (1)
  1. SIMPONI ARIA [Suspect]
     Active Substance: GOLIMUMAB
     Indication: RHEUMATOID ARTHRITIS
     Route: 042
     Dates: start: 2017

REACTIONS (7)
  - Off label use [Unknown]
  - Vitamin B12 deficiency [Unknown]
  - Product use issue [Unknown]
  - Vitamin D deficiency [Unknown]
  - Blood iron decreased [Unknown]
  - Rheumatoid arthritis [Unknown]
  - Vitamin C decreased [Unknown]

NARRATIVE: CASE EVENT DATE: 20200416
